FAERS Safety Report 7635120-1 (Version None)
Quarter: 2011Q3

REPORT INFORMATION
  Report Type: 
  Country: None (occurrence: None)
  Receive Date: 20110726
  Receipt Date: 20110714
  Transmission Date: 20111222
  Serious: Yes (Disabling, Other)
  Sender: FDA-Public Use
  Company Number: GB-AMGEN-GBRSP2011035770

PATIENT
  Age: 69 Year
  Sex: Female

DRUGS (2)
  1. PROLIA [Suspect]
     Indication: OSTEOPOROSIS
     Dosage: 60 MG, UNK
     Route: 058
     Dates: start: 20110608
  2. CALCIUM +D                         /00188401/ [Concomitant]
     Indication: OSTEOPOROSIS
     Route: 048

REACTIONS (5)
  - INFLUENZA LIKE ILLNESS [None]
  - PARAESTHESIA [None]
  - DYSURIA [None]
  - MUSCLE SPASMS [None]
  - URINARY INCONTINENCE [None]
